FAERS Safety Report 6687899-3 (Version None)
Quarter: 2010Q2

REPORT INFORMATION
  Report Type: 
  Country: None (occurrence: None)
  Receive Date: 20100420
  Receipt Date: 20100412
  Transmission Date: 20101027
  Serious: Yes (Other)
  Sender: FDA-Public Use
  Company Number: US-ASTRAZENECA-2009UW02753

PATIENT
  Age: 16495 Day
  Sex: Female
  Weight: 99.8 kg

DRUGS (12)
  1. SEROQUEL [Suspect]
     Route: 048
     Dates: start: 20061227
  2. ACYCLOVIR [Concomitant]
     Indication: HERPES ZOSTER
     Dates: start: 20070123
  3. DEMEROL [Concomitant]
     Dates: start: 20070123
  4. LEVBID [Concomitant]
     Dates: start: 20070123
  5. KLONOPIN [Concomitant]
     Dates: start: 20070123
  6. PAXIL [Concomitant]
     Dates: start: 20070123
  7. NEXIUM [Concomitant]
     Dates: start: 20070123
  8. BUSPAR [Concomitant]
     Dates: start: 20070123
  9. REMERON [Concomitant]
     Dates: start: 20070123
  10. LYRICA [Concomitant]
     Dates: start: 20070123
  11. CRESTOR [Concomitant]
     Dates: start: 20070123
  12. ABILIFY [Concomitant]
     Dates: start: 20070123

REACTIONS (2)
  - DIABETES MELLITUS [None]
  - NEUROPATHY PERIPHERAL [None]
